FAERS Safety Report 8659947 (Version 2)
Quarter: 2012Q4

REPORT INFORMATION
  Report Type: 
  Country: IT (occurrence: IT)
  Receive Date: 20120711
  Receipt Date: 20121016
  Transmission Date: 20130627
  Serious: Yes (Life-Threatening, Hospitalization)
  Sender: FDA-Public Use
  Company Number: IT-ASTRAZENECA-2012SE46547

PATIENT
  Age: 27 Year
  Sex: Female

DRUGS (6)
  1. SEROQUEL [Suspect]
     Dosage: 12000 MG
     Route: 048
     Dates: start: 20120305, end: 20120305
  2. TOLEP [Suspect]
     Dosage: 4500 MG
     Route: 048
     Dates: start: 20120305, end: 20120305
  3. TAVOR [Concomitant]
     Route: 048
  4. SEREPRILE [Concomitant]
     Route: 048
  5. CIPRALEX [Concomitant]
     Route: 048
  6. STILNOX [Concomitant]
     Route: 048

REACTIONS (7)
  - Intentional overdose [Unknown]
  - Agitation [Recovering/Resolving]
  - Drug abuse [Recovering/Resolving]
  - Headache [Recovering/Resolving]
  - Mydriasis [Recovering/Resolving]
  - Respiratory failure [Recovering/Resolving]
  - Tachycardia [Recovering/Resolving]
